FAERS Safety Report 8350836-X (Version None)
Quarter: 2012Q2

REPORT INFORMATION
  Report Type: 
  Country: None (occurrence: None)
  Receive Date: 20120510
  Receipt Date: 20120427
  Transmission Date: 20120825
  Serious: Yes (Other)
  Sender: FDA-Public Use
  Company Number: DE-BAYER-2012-045450

PATIENT
  Age: 31 Year
  Sex: Female

DRUGS (1)
  1. MIRENA [Suspect]
     Indication: CONTRACEPTION
     Dosage: UNK
     Dates: start: 20071220

REACTIONS (4)
  - PARAESTHESIA [None]
  - CONVULSION [None]
  - DISTURBANCE IN ATTENTION [None]
  - ROAD TRAFFIC ACCIDENT [None]
